FAERS Safety Report 7647457-0 (Version None)
Quarter: 2011Q3

REPORT INFORMATION
  Report Type: 
  Country: None (occurrence: None)
  Receive Date: 20110801
  Receipt Date: 20110721
  Transmission Date: 20111222
  Serious: Yes (Hospitalization, Other)
  Sender: FDA-Public Use
  Company Number: AT-SANOFI-AVENTIS-2010SA058885

PATIENT
  Age: 64 Year
  Sex: Male

DRUGS (26)
  1. ASPIRIN [Suspect]
     Indication: STENT PLACEMENT
     Route: 048
     Dates: end: 20101007
  2. NOOTROPIL [Concomitant]
     Indication: TRANSIENT ISCHAEMIC ATTACK
     Route: 048
  3. NOVORAPID [Concomitant]
     Dosage: DOSE:37 UNIT(S)
     Route: 051
     Dates: start: 20091126, end: 20100902
  4. ATACAND [Concomitant]
     Route: 048
  5. CLOPIDOGREL [Suspect]
     Indication: STENT PLACEMENT
     Route: 048
     Dates: end: 20101231
  6. IBUPROFEN [Concomitant]
     Dates: start: 20100910, end: 20100917
  7. AMIODARONE HYDROCHLORIDE [Concomitant]
     Indication: ATRIAL FIBRILLATION
     Route: 048
  8. TRAMUNDAL [Concomitant]
     Route: 048
  9. NEURONTIN [Concomitant]
     Indication: DIABETIC NEUROPATHY
     Route: 048
  10. PLAVIX [Suspect]
     Indication: PROPHYLAXIS
     Route: 048
  11. INVESTIGATIONAL DRUG [Concomitant]
     Indication: PROPHYLAXIS
     Route: 065
     Dates: start: 20100903
  12. ACETAMINOPHEN [Concomitant]
     Dates: start: 20100910, end: 20100917
  13. CRESTOR [Concomitant]
     Indication: HYPERLIPIDAEMIA
     Route: 048
  14. LANTUS [Concomitant]
     Dosage: DOSE:30 UNIT(S)
     Route: 051
     Dates: start: 20081204, end: 20100902
  15. NOVALGIN [Concomitant]
     Dates: start: 20100917, end: 20100926
  16. ASPIRIN [Suspect]
     Indication: PROPHYLAXIS
     Route: 048
     Dates: end: 20101007
  17. BETASERC [Concomitant]
     Indication: VERTIGO
     Route: 048
     Dates: end: 20100927
  18. LEVOTHYROXINE SODIUM [Concomitant]
     Indication: HYPOTHYROIDISM
     Route: 048
  19. PANTOPRAZOLE SODIUM [Concomitant]
     Route: 048
  20. LANTUS [Concomitant]
     Dosage: DOSE:22 UNIT(S)
     Route: 051
     Dates: start: 20100903
  21. NOVORAPID [Concomitant]
     Dosage: DOSE:26 UNIT(S)
     Route: 051
     Dates: start: 20100903
  22. LASIX [Concomitant]
     Route: 048
  23. TAMSULOSIN HYDROCHLORIDE [Concomitant]
     Route: 048
  24. FERRITIN [Concomitant]
     Indication: ANAEMIA
     Route: 051
     Dates: start: 20100901
  25. TRAMADOL HYDROCHLORIDE [Concomitant]
     Dates: start: 20100910, end: 20100917
  26. MAGNOSOLV ^ASTA MEDICA^ [Concomitant]
     Indication: MYOCARDIAL INFARCTION
     Route: 048

REACTIONS (3)
  - MELAENA [None]
  - GASTRIC HAEMORRHAGE [None]
  - GASTRIC POLYPS [None]
